FAERS Safety Report 18382585 (Version 1)
Quarter: 2020Q4

REPORT INFORMATION
  Report Type: Spontaneous
  Country: US (occurrence: US)
  Receive Date: 20201014
  Receipt Date: 20201014
  Transmission Date: 20210114
  Serious: No
  Sender: FDA-Public Use
  Company Number: US-ANIPHARMA-2020-US-016419

PATIENT
  Sex: Male

DRUGS (1)
  1. POTASSIUM CITRATE EXTENDED-RELEASE TABLETS [Suspect]
     Active Substance: POTASSIUM CITRATE
     Indication: RENAL LITHIASIS PROPHYLAXIS
     Dosage: TWO TABLETS BY MOUTH TWICE DAILY
     Route: 048
     Dates: start: 2013

REACTIONS (1)
  - Product residue present [Unknown]
